FAERS Safety Report 9123023 (Version 1)
Quarter: 2013Q1

REPORT INFORMATION
  Report Type: Report from Study
  Country: CA (occurrence: CA)
  Receive Date: 20130227
  Receipt Date: 20130227
  Transmission Date: 20140127
  Serious: Yes (Other)
  Sender: FDA-Public Use
  Company Number: CA-JNJFOC-20130212882

PATIENT
  Age: 25 Year
  Sex: Male
  Weight: 114.3 kg

DRUGS (1)
  1. REMICADE [Suspect]
     Indication: COLITIS ULCERATIVE
     Route: 042
     Dates: start: 20121130

REACTIONS (2)
  - Anaemia [Recovered/Resolved]
  - Haemorrhoids [Recovered/Resolved]
